FAERS Safety Report 25791836 (Version 1)
Quarter: 2025Q3

REPORT INFORMATION
  Report Type: Spontaneous
  Country: EU (occurrence: EU)
  Receive Date: 20250911
  Receipt Date: 20250911
  Transmission Date: 20251021
  Serious: Yes (Death, Life-Threatening, Hospitalization)
  Sender: AMGEN
  Company Number: EU-AMGEN-ESPSP2025176254

PATIENT

DRUGS (2)
  1. BEVACIZUMAB [Suspect]
     Active Substance: BEVACIZUMAB
     Indication: Hepatocellular carcinoma
     Route: 065
  2. ATEZOLIZUMAB [Concomitant]
     Active Substance: ATEZOLIZUMAB
     Indication: Hepatocellular carcinoma
     Route: 065

REACTIONS (24)
  - Hepatocellular carcinoma [Fatal]
  - Death [Fatal]
  - Infusion related reaction [Unknown]
  - Oesophageal varices haemorrhage [Unknown]
  - Myositis [Unknown]
  - Myocarditis [Unknown]
  - Pneumonitis [Unknown]
  - Encephalitis [Unknown]
  - Craniocerebral injury [Unknown]
  - Haemorrhagic stroke [Unknown]
  - Toxicity to various agents [Unknown]
  - Thrombocytopenia [Unknown]
  - Acute myocardial infarction [Unknown]
  - Diabetes mellitus [Unknown]
  - Guillain-Barre syndrome [Unknown]
  - Hypothyroidism [Unknown]
  - Nephritis [Unknown]
  - Bacterial infection [Unknown]
  - Atrial fibrillation [Unknown]
  - Pneumonia [Unknown]
  - Peritonitis bacterial [Unknown]
  - Acute on chronic liver failure [Unknown]
  - Hepatitis [Unknown]
  - Off label use [Unknown]
